FAERS Safety Report 6413774-5 (Version None)
Quarter: 2009Q4

REPORT INFORMATION
  Report Type: 
  Country: None (occurrence: None)
  Receive Date: 20091026
  Receipt Date: 20090925
  Transmission Date: 20100525
  Serious: No
  Sender: FDA-Public Use
  Company Number: US-BAYER-200934547NA

PATIENT
  Age: 22 Year
  Sex: Female
  Weight: 113 kg

DRUGS (1)
  1. MIRENA [Suspect]
     Indication: CONTRACEPTION
     Dosage: \CONTINUOUS
     Route: 015
     Dates: start: 20090924

REACTIONS (1)
  - ARTHRALGIA [None]
